FAERS Safety Report 6738601-8 (Version None)
Quarter: 2010Q2

REPORT INFORMATION
  Report Type: 
  Country: None (occurrence: None)
  Receive Date: 20100524
  Receipt Date: 20100514
  Transmission Date: 20101027
  Serious: Yes (Other)
  Sender: FDA-Public Use
  Company Number: KR-PFIZER INC-2010056873

PATIENT
  Sex: Male

DRUGS (3)
  1. ZELDOX [Suspect]
     Dosage: 40 MG, 1X/DAY, BEFORE SLEEP
     Route: 048
     Dates: start: 20091201
  2. XANAX [Suspect]
     Dosage: 1 TABLET, 2X/DAY
     Route: 048
     Dates: start: 20091201
  3. ZOLPIDEM [Concomitant]
     Indication: INSOMNIA
     Dosage: 1.5 PILLS
     Route: 048

REACTIONS (7)
  - ASTHENIA [None]
  - DELUSION [None]
  - DEPRESSED LEVEL OF CONSCIOUSNESS [None]
  - DISTURBANCE IN ATTENTION [None]
  - DIZZINESS [None]
  - FEELING ABNORMAL [None]
  - GAIT DISTURBANCE [None]
